FAERS Safety Report 15640674 (Version 1)
Quarter: 2018Q4

REPORT INFORMATION
  Report Type: Spontaneous
  Country: NO (occurrence: NO)
  Receive Date: 20181120
  Receipt Date: 20181120
  Transmission Date: 20190205
  Serious: Yes (Other)
  Sender: FDA-Public Use
  Company Number: NO-TEVA-2018-NO-976177

PATIENT
  Age: 39 Year
  Sex: Female

DRUGS (3)
  1. IMUREL [Suspect]
     Active Substance: AZATHIOPRINE SODIUM
     Indication: PEMPHIGUS
     Dosage: 50 MILLIGRAM DAILY; REDUCED TO 25 MG A DAY AT THE TIME OF THE AE REPPORT
     Route: 048
     Dates: start: 2013
  2. CETIRIZIN SANDOZ [Concomitant]
     Indication: HYPERSENSITIVITY
     Dosage: 10 MILLIGRAM DAILY;
     Route: 048
  3. PREDNISOLONE. [Suspect]
     Active Substance: PREDNISOLONE
     Indication: PEMPHIGUS
     Dosage: CHANGING DOSES. PARTLY HIGHER DOSES FROM 2008 TIL 2014.
     Route: 048
     Dates: start: 2008, end: 2014

REACTIONS (3)
  - Synovitis [Not Recovered/Not Resolved]
  - Osteonecrosis [Not Recovered/Not Resolved]
  - Bone infarction [Not Recovered/Not Resolved]

NARRATIVE: CASE EVENT DATE: 201809
